FAERS Safety Report 11588676 (Version 2)
Quarter: 2016Q1

REPORT INFORMATION
  Report Type: Spontaneous
  Country: US (occurrence: US)
  Receive Date: 20151002
  Receipt Date: 20160318
  Transmission Date: 20160525
  Serious: Yes (Other)
  Sender: FDA-Public Use
  Company Number: US-WATSON-2015-21135

PATIENT
  Age: 69 Year
  Sex: Female
  Weight: 113 kg

DRUGS (18)
  1. SULFAMETHOXAZOLE-TRIMETHOPRIM (SMZ) [Suspect]
     Active Substance: SULFAMETHOXAZOLE\TRIMETHOPRIM
     Indication: PRODUCT USED FOR UNKNOWN INDICATION
     Dosage: UNK
     Route: 065
  2. HYDROCODONE BITARTRATE AND ACETAMINOPHEN [Concomitant]
     Active Substance: ACETAMINOPHEN\HYDROCODONE BITARTRATE
     Indication: PRODUCT USED FOR UNKNOWN INDICATION
     Dosage: UNK
     Route: 065
  3. PAROXETINE [Concomitant]
     Active Substance: PAROXETINE\PAROXETINE HYDROCHLORIDE
     Indication: PRODUCT USED FOR UNKNOWN INDICATION
     Dosage: UNK
     Route: 065
  4. VANCOMYCIN HCL (WATSON LABORATORIES) [Suspect]
     Active Substance: VANCOMYCIN
     Indication: WOUND INFECTION STAPHYLOCOCCAL
     Dosage: 750 MG, EVERY 12 H
     Route: 042
  5. VANCOMYCIN HCL (WATSON LABORATORIES) [Suspect]
     Active Substance: VANCOMYCIN
     Dosage: 1 G, EVERY 12 H
     Route: 042
  6. PIPERACILLIN AND TAZOBACTAM [Suspect]
     Active Substance: PIPERACILLIN SODIUM\TAZOBACTAM SODIUM
     Indication: WOUND INFECTION STAPHYLOCOCCAL
     Dosage: UNK
     Route: 042
  7. HYDROCHLOROTHIAZIDE (ACTAVIS LABORATORIES UT) [Suspect]
     Active Substance: HYDROCHLOROTHIAZIDE
     Indication: PRODUCT USED FOR UNKNOWN INDICATION
     Dosage: UNK
     Route: 065
  8. RIFAMPIN. [Concomitant]
     Active Substance: RIFAMPIN
     Indication: WOUND INFECTION STAPHYLOCOCCAL
     Dosage: UNK
     Route: 048
  9. TOBRAMYCIN SULFATE (WATSON LABORATORIES) [Suspect]
     Active Substance: TOBRAMYCIN SULFATE
     Indication: WOUND INFECTION STAPHYLOCOCCAL
     Dosage: 10.8 G, 3.6 G  MIXED WITH COBALT CEMENT INJECTED INTO THE TIBIAL AND FEMORAL MOLDS
     Route: 050
  10. MORPHINE [Concomitant]
     Active Substance: MORPHINE
     Indication: PRODUCT USED FOR UNKNOWN INDICATION
     Dosage: UNK
     Route: 065
  11. ENALAPRIL (WATSON LABORATORIES) [Suspect]
     Active Substance: ENALAPRIL
     Indication: PRODUCT USED FOR UNKNOWN INDICATION
     Dosage: UNK
     Route: 065
  12. DAPTOMYCIN. [Concomitant]
     Active Substance: DAPTOMYCIN
     Indication: WOUND INFECTION STAPHYLOCOCCAL
     Dosage: UNK
     Route: 042
  13. VANCOMYCIN HCL (WATSON LABORATORIES) [Suspect]
     Active Substance: VANCOMYCIN
     Dosage: 12 G THEN 4 G MIXED WITH COBALT CEMENT INJECTED INTO THE TIBIAL AND FEMORAL MOLDS
     Route: 050
  14. LISINOPRIL (WATSON LABORATORIES) [Suspect]
     Active Substance: LISINOPRIL
     Indication: PRODUCT USED FOR UNKNOWN INDICATION
     Dosage: UNK
     Route: 065
  15. CEPHALEXIN                         /00145501/ [Concomitant]
     Active Substance: CEPHALEXIN
     Indication: WOUND INFECTION STAPHYLOCOCCAL
     Dosage: UNK
     Route: 048
  16. AMLODIPINE [Concomitant]
     Active Substance: AMLODIPINE BESYLATE
     Indication: PRODUCT USED FOR UNKNOWN INDICATION
     Dosage: UNK
     Route: 065
  17. DULOXETINE. [Concomitant]
     Active Substance: DULOXETINE
     Indication: PRODUCT USED FOR UNKNOWN INDICATION
     Dosage: UNK
     Route: 065
  18. SOLIFENACIN [Concomitant]
     Active Substance: SOLIFENACIN
     Indication: PRODUCT USED FOR UNKNOWN INDICATION
     Dosage: UNK
     Route: 065

REACTIONS (2)
  - Acute kidney injury [Recovered/Resolved]
  - Drug level increased [Unknown]
